FAERS Safety Report 21263110 (Version 1)
Quarter: 2022Q3

REPORT INFORMATION
  Report Type: Report from Study
  Country: CA (occurrence: CA)
  Receive Date: 20220828
  Receipt Date: 20220828
  Transmission Date: 20221027
  Serious: Yes (Other)
  Sender: FDA-Public Use
  Company Number: CA-BEH-2022149014

PATIENT
  Age: 25 Year
  Sex: Female
  Weight: 52.2 kg

DRUGS (1)
  1. HIZENTRA [Suspect]
     Active Substance: HUMAN IMMUNOGLOBULIN G
     Indication: Primary immunodeficiency syndrome
     Dosage: 20 GRAM, QOW
     Route: 065
     Dates: start: 20150828

REACTIONS (3)
  - Immunodeficiency [Unknown]
  - Therapy non-responder [Unknown]
  - Cough [Unknown]
